FAERS Safety Report 8351870-6 (Version None)
Quarter: 2012Q2

REPORT INFORMATION
  Report Type: 
  Country: None (occurrence: None)
  Receive Date: 20120510
  Receipt Date: 20120510
  Transmission Date: 20120825
  Serious: No
  Sender: FDA-Public Use
  Company Number: None

PATIENT
  Sex: Male

DRUGS (1)
  1. EXJADE [Suspect]
     Dosage: 750 MG QD PO
     Route: 048
     Dates: start: 20100805

REACTIONS (1)
  - ABDOMINAL PAIN UPPER [None]
